FAERS Safety Report 6943083-7 (Version None)
Quarter: 2010Q3

REPORT INFORMATION
  Report Type: 
  Country: None (occurrence: None)
  Receive Date: 20100826
  Receipt Date: 20100818
  Transmission Date: 20110219
  Serious: Yes (Hospitalization)
  Sender: FDA-Public Use
  Company Number: GXKR2010DE06706

PATIENT
  Age: 30 Year

DRUGS (5)
  1. VENLAFAXINE HCL [Suspect]
     Indication: SCHIZOPHRENIA
     Dosage: GRADUALLY INCREASED TO 300 MG/DAY
     Route: 065
  2. QUETIAPINE [Concomitant]
     Indication: SCHIZOPHRENIA
     Dosage: MAXIMUM OF 1200 MG PER DAY
     Route: 065
  3. QUETIAPINE [Concomitant]
     Dosage: UP TO A MAXIMUM OF 700 MG PER DAY
  4. CLOMIPRAMINE [Concomitant]
     Indication: SCHIZOPHRENIA
     Dosage: 150 MG/DAY
     Route: 065
  5. VALPROIC ACID [Concomitant]
     Indication: SCHIZOPHRENIA
     Dosage: 900 MG/DAY
     Route: 065

REACTIONS (13)
  - ABNORMAL BEHAVIOUR [None]
  - DELUSION OF GRANDEUR [None]
  - DISSOCIATION [None]
  - DISTURBANCE IN ATTENTION [None]
  - DRUG ABUSE [None]
  - DRUG DEPENDENCE [None]
  - DYSPHORIA [None]
  - EUPHORIC MOOD [None]
  - IMPULSIVE BEHAVIOUR [None]
  - LOGORRHOEA [None]
  - MANIA [None]
  - TACHYPHRENIA [None]
  - TREATMENT NONCOMPLIANCE [None]
